FAERS Safety Report 8790797 (Version 1)
Quarter: 2012Q4

REPORT INFORMATION
  Report Type: Spontaneous
  Country: US (occurrence: None)
  Receive Date: 20120912
  Receipt Date: 20120912
  Transmission Date: 20130627
  Serious: Yes (Hospitalization)
  Sender: FDA-Public Use
  Company Number: None

PATIENT
  Age: 60 Year
  Sex: Male
  Weight: 73.2 kg

DRUGS (4)
  1. GABAPENTIN [Suspect]
     Indication: DIABETES MELLITUS
     Route: 048
     Dates: start: 20120316, end: 20120316
  2. GABAPENTIN [Suspect]
     Indication: DIABETIC NEUROPATHY
     Route: 048
     Dates: start: 20120316, end: 20120316
  3. GABAPENTIN [Suspect]
     Indication: FOOT PAIN
     Route: 048
     Dates: start: 20120316, end: 20120316
  4. MELOXICAM [Suspect]
     Route: 048
     Dates: start: 20120316, end: 20120317

REACTIONS (1)
  - Angioedema [None]
